FAERS Safety Report 18606085 (Version 2)
Quarter: 2020Q4

REPORT INFORMATION
  Report Type: Spontaneous
  Country: JP (occurrence: JP)
  Receive Date: 20201211
  Receipt Date: 20201222
  Transmission Date: 20210114
  Serious: Yes (Hospitalization)
  Sender: FDA-Public Use
  Company Number: JP-ASTRAZENECA-2020SF61857

PATIENT

DRUGS (15)
  1. LOKELMA [Suspect]
     Active Substance: SODIUM ZIRCONIUM CYCLOSILICATE
     Route: 048
     Dates: start: 20201130
  2. KREMEZIN [Concomitant]
     Active Substance: ACTIVATED CHARCOAL
  3. TAKECAB [Concomitant]
     Active Substance: VONOPRAZAN FUMARATE
  4. LOKELMA [Suspect]
     Active Substance: SODIUM ZIRCONIUM CYCLOSILICATE
     Route: 048
     Dates: start: 20200909
  5. PRECIPITATED CALCIUM CARBONATE [Concomitant]
     Active Substance: CALCIUM CARBONATE
  6. ARGAMATE [Concomitant]
     Active Substance: CALCIUM POLYSTYRENE SULFONATE
  7. FEBURIC [Concomitant]
     Active Substance: FEBUXOSTAT
  8. JUSO [Concomitant]
     Active Substance: SODIUM BICARBONATE
     Route: 048
  9. NITRODERM [Concomitant]
     Active Substance: NITROGLYCERIN
  10. CILNIDIPINE [Concomitant]
     Active Substance: CILNIDIPINE
  11. TENELIA [Concomitant]
     Active Substance: TENELIGLIPTIN
  12. BERAPROST SODIUM [Concomitant]
     Active Substance: BERAPROST SODIUM
  13. REPAGLINIDE. [Concomitant]
     Active Substance: REPAGLINIDE
  14. FUROSEMIDE. [Concomitant]
     Active Substance: FUROSEMIDE
  15. TORASEMIDE [Concomitant]
     Active Substance: TORSEMIDE

REACTIONS (1)
  - Limb injury [Unknown]

NARRATIVE: CASE EVENT DATE: 20201022
